FAERS Safety Report 9219350 (Version 1)
Quarter: 2013Q2

REPORT INFORMATION
  Report Type: Spontaneous
  Country: US (occurrence: None)
  Receive Date: 20130405
  Receipt Date: 20130405
  Transmission Date: 20140414
  Serious: Yes (Other)
  Sender: FDA-Public Use
  Company Number: AUR-APL-2013-02724

PATIENT
  Age: 65 Year
  Sex: Male

DRUGS (15)
  1. LEVETIRACETAM (LEVETIRACETAM) [Suspect]
     Indication: STATUS EPILEPTICUS
     Route: 042
  2. LORAZEPAM (LORAZEPAM) [Suspect]
     Indication: STATUS EPILEPTICUS
     Dosage: 7 HR
     Route: 042
  3. MIDAZOLAM (MIDAZOLAM) [Suspect]
     Indication: STATUS EPILEPTICUS
     Route: 042
  4. DIGOXIN (DIGOXIN) [Concomitant]
  5. FUROSEMIDE (FUROSEMIDE) [Concomitant]
  6. SPIRONOLACTONE (SPIRONOLACTONE) [Concomitant]
  7. CARVEDILOL (CARVEDILOL) [Concomitant]
  8. LISINOPRIL (LISINOPRIL) [Concomitant]
  9. ASPIRIN (ACETYLSALICYLIC ACID) [Concomitant]
  10. POTASSIUM CHLORIDE (POTASSIUM CHLORIDE) [Concomitant]
  11. FOLIC ACID (FOLIC ACID) [Concomitant]
  12. NOREPINEPHRINE (NOREPINEPHRINE) [Concomitant]
  13. AMIODARONE (AMIODARONE) [Concomitant]
  14. DOPAMINE (DOPAMINE) [Concomitant]
  15. FOSPHENYTOIN (FOSPHENYTOIN) [Concomitant]

REACTIONS (9)
  - Bradycardia [None]
  - Coma [None]
  - Haemoglobin decreased [None]
  - Blood glucose increased [None]
  - Ventricular fibrillation [None]
  - Toxicologic test abnormal [None]
  - Status epilepticus [None]
  - Electroencephalogram abnormal [None]
  - Substance abuse [None]
